FAERS Safety Report 21526972 (Version 3)
Quarter: 2023Q2

REPORT INFORMATION
  Report Type: Report from Study
  Country: US (occurrence: US)
  Receive Date: 20221031
  Receipt Date: 20230511
  Transmission Date: 20230722
  Serious: No
  Sender: FDA-Public Use
  Company Number: US-NOVARTISTESTPH-NVSC2022US242954

PATIENT
  Sex: Female
  Weight: 119.29 kg

DRUGS (4)
  1. TREPROSTINIL [Suspect]
     Active Substance: TREPROSTINIL
     Indication: Hypertension
     Dosage: 66.7 (NG/KG/ MIN), CONT
     Route: 058
     Dates: start: 20210806
  2. TREPROSTINIL [Suspect]
     Active Substance: TREPROSTINIL
     Dosage: 66.7 (NG/KG/ MIN), CONT
     Route: 058
     Dates: start: 20210806
  3. LETAIRIS [Concomitant]
     Active Substance: AMBRISENTAN
     Indication: Product used for unknown indication
     Dosage: UNK
     Route: 065
  4. WARFARIN [Concomitant]
     Active Substance: WARFARIN
     Indication: Product used for unknown indication
     Dosage: UNK
     Route: 065

REACTIONS (2)
  - Infection [Unknown]
  - Application site haemorrhage [Unknown]
